FAERS Safety Report 23077550 (Version 1)
Quarter: 2023Q4

REPORT INFORMATION
  Report Type: Spontaneous
  Country: FR (occurrence: FR)
  Receive Date: 20231018
  Receipt Date: 20231018
  Transmission Date: 20240109
  Serious: Yes (Hospitalization)
  Sender: FDA-Public Use
  Company Number: None

PATIENT
  Sex: Female
  Weight: 3.1 kg

DRUGS (1)
  1. ELTROMBOPAG OLAMINE [Suspect]
     Active Substance: ELTROMBOPAG OLAMINE
     Indication: Foetal exposure during pregnancy
     Dosage: (START DATE: 23 JUN 2023, MATERNAL DOSE: 25 MG)
     Route: 064

REACTIONS (1)
  - Thrombocytosis [Recovered/Resolved]

NARRATIVE: CASE EVENT DATE: 20230722
